FAERS Safety Report 12707807 (Version 2)
Quarter: 2016Q3

REPORT INFORMATION
  Report Type: Spontaneous
  Country: JP (occurrence: JP)
  Receive Date: 20160901
  Receipt Date: 20160907
  Transmission Date: 20161109
  Serious: Yes (Death, Other)
  Sender: FDA-Public Use
  Company Number: JP-ELI_LILLY_AND_COMPANY-JP201608013583

PATIENT
  Age: 52 Year
  Sex: Male
  Weight: 67 kg

DRUGS (4)
  1. ERBITUX [Suspect]
     Active Substance: CETUXIMAB
     Dosage: 450 MG, UNKNOWN
     Route: 042
     Dates: end: 20160726
  2. IRINOTECAN [Concomitant]
     Active Substance: IRINOTECAN
     Indication: RECTAL CANCER
     Dosage: 280 MG, UNKNOWN
     Route: 065
     Dates: start: 20160426, end: 20160726
  3. TS-1 [Concomitant]
     Active Substance: GIMERACIL\OTERACIL\TEGAFUR
     Indication: RECTAL CANCER
     Dosage: 120 MG, UNKNOWN
     Route: 048
     Dates: start: 20160426, end: 20160726
  4. ERBITUX [Suspect]
     Active Substance: CETUXIMAB
     Indication: COLORECTAL CANCER
     Dosage: 750 MG, UNKNOWN
     Route: 042
     Dates: start: 20160426

REACTIONS (7)
  - Postrenal failure [Fatal]
  - Malignant neoplasm progression [Fatal]
  - Staphylococcal infection [Unknown]
  - Disseminated intravascular coagulation [Unknown]
  - Ureteric obstruction [Unknown]
  - Hydronephrosis [Unknown]
  - Off label use [Unknown]

NARRATIVE: CASE EVENT DATE: 20160814
